FAERS Safety Report 5898330-X (Version None)
Quarter: 2008Q3

REPORT INFORMATION
  Report Type: 
  Country: None (occurrence: None)
  Receive Date: 20080925
  Receipt Date: 20070917
  Transmission Date: 20090109
  Serious: No
  Sender: FDA-Public Use
  Company Number: A0682450A

PATIENT
  Age: 54 Year
  Sex: Female

DRUGS (3)
  1. WELLBUTRIN XL [Suspect]
     Indication: ANXIETY
     Dosage: 150MG PER DAY
     Route: 048
     Dates: start: 20070828
  2. ASPIRIN [Concomitant]
  3. ZEBETA [Concomitant]

REACTIONS (7)
  - COUGH [None]
  - DRY MOUTH [None]
  - POSTNASAL DRIP [None]
  - THROAT IRRITATION [None]
  - TREMOR [None]
  - WEIGHT DECREASED [None]
  - WEIGHT INCREASED [None]
